FAERS Safety Report 8062477 (Version 3)
Quarter: 2013Q4

REPORT INFORMATION
  Report Type: Spontaneous
  Country: JP (occurrence: JP)
  Receive Date: 20110801
  Receipt Date: 20131003
  Transmission Date: 20140711
  Serious: Yes (Other)
  Sender: FDA-Public Use
  Company Number: JP-SANOFI-AVENTIS-2011SA047136

PATIENT
  Age: 70 Year
  Sex: Male

DRUGS (5)
  1. ELPLAT [Suspect]
     Indication: COLON CANCER
     Dosage: TOTAL 3 CYCLES
     Route: 041
  2. FLUOROURACIL [Concomitant]
     Indication: COLON CANCER
     Dosage: TOTAL 3 CYCLES
     Route: 041
  3. FLUOROURACIL [Concomitant]
     Indication: COLON CANCER
     Dosage: TOTAL 3 CYCLES
     Route: 040
  4. CALCIUM LEVOFOLINATE [Concomitant]
     Indication: COLON CANCER
     Route: 041
  5. AVASTIN [Concomitant]
     Indication: COLON CANCER
     Route: 041

REACTIONS (3)
  - Haemoptysis [Recovering/Resolving]
  - Acute respiratory distress syndrome [Recovering/Resolving]
  - Neutrophil count decreased [Recovering/Resolving]
